FAERS Safety Report 9044939 (Version 2)
Quarter: 2013Q1

REPORT INFORMATION
  Report Type: Spontaneous
  Country: JP (occurrence: JP)
  Receive Date: 20130130
  Receipt Date: 20130213
  Transmission Date: 20140127
  Serious: Yes (Hospitalization)
  Sender: FDA-Public Use
  Company Number: JP-GLAXOSMITHKLINE-B0863035A

PATIENT
  Age: 28 None
  Sex: Female

DRUGS (3)
  1. LAMICTAL [Suspect]
     Indication: BIPOLAR DISORDER
     Dosage: 25MG TWICE PER DAY
     Route: 048
     Dates: start: 20130108, end: 20130122
  2. LENDORMIN [Concomitant]
     Indication: INSOMNIA
     Dosage: .25MG PER DAY
     Route: 048
  3. AMOBAN [Concomitant]
     Indication: INSOMNIA
     Dosage: 7.5MG PER DAY
     Route: 048

REACTIONS (3)
  - Erythema [Not Recovered/Not Resolved]
  - Drug eruption [Unknown]
  - Viral rash [Unknown]
